FAERS Safety Report 19766607 (Version 4)
Quarter: 2021Q4

REPORT INFORMATION
  Report Type: Report from Study
  Country: CN (occurrence: CN)
  Receive Date: 20210830
  Receipt Date: 20211011
  Transmission Date: 20220303
  Serious: Yes (Hospitalization)
  Sender: FDA-Public Use
  Company Number: CN-PFIZER INC-202101087062

PATIENT
  Age: 63 Year
  Sex: Male
  Weight: 62 kg

DRUGS (30)
  1. PACLITAXEL [Suspect]
     Active Substance: PACLITAXEL
     Indication: Non-small cell lung cancer
     Dosage: 313 MG, EVERY 3 WEEKS
     Route: 041
     Dates: start: 20210226, end: 20210226
  2. PACLITAXEL [Suspect]
     Active Substance: PACLITAXEL
     Dosage: 313 MG, EVERY 3 WEEKS
     Route: 041
     Dates: start: 20210318, end: 20210318
  3. PACLITAXEL [Suspect]
     Active Substance: PACLITAXEL
     Dosage: 319 MG, EVERY 3 WEEKS
     Route: 041
     Dates: start: 20210409, end: 20210409
  4. PACLITAXEL [Suspect]
     Active Substance: PACLITAXEL
     Dosage: 322 MG, EVERY 3 WEEKS
     Route: 041
     Dates: start: 20210430, end: 20210430
  5. INVESTIGATIONAL PRODUCT [Suspect]
     Active Substance: INVESTIGATIONAL PRODUCT
     Indication: Non-small cell lung cancer
     Dosage: EVERY 3 WEEKS
     Route: 041
     Dates: start: 20210225, end: 20210225
  6. INVESTIGATIONAL PRODUCT [Suspect]
     Active Substance: INVESTIGATIONAL PRODUCT
     Dosage: EVERY 3 WEEKS
     Route: 041
     Dates: start: 20210317, end: 20210317
  7. INVESTIGATIONAL PRODUCT [Suspect]
     Active Substance: INVESTIGATIONAL PRODUCT
     Dosage: EVERY 3 WEEKS
     Route: 041
     Dates: start: 20210408, end: 20210408
  8. INVESTIGATIONAL PRODUCT [Suspect]
     Active Substance: INVESTIGATIONAL PRODUCT
     Dosage: EVERY 3 WEEKS
     Route: 041
     Dates: start: 20210429, end: 20210429
  9. INVESTIGATIONAL PRODUCT [Suspect]
     Active Substance: INVESTIGATIONAL PRODUCT
     Dosage: EVERY 2 WEEKS
     Route: 041
     Dates: start: 20210520, end: 20210520
  10. INVESTIGATIONAL PRODUCT [Suspect]
     Active Substance: INVESTIGATIONAL PRODUCT
     Dosage: EVERY 2 WEEKS
     Route: 041
     Dates: start: 20210604, end: 20210604
  11. CARBOPLATIN [Suspect]
     Active Substance: CARBOPLATIN
     Indication: Non-small cell lung cancer
     Dosage: 675.1 MG, EVERY 3 WEEKS
     Route: 041
     Dates: start: 20210226, end: 20210226
  12. CARBOPLATIN [Suspect]
     Active Substance: CARBOPLATIN
     Dosage: 533.8 MG, EVERY 3 WEEKS
     Route: 041
     Dates: start: 20210318, end: 20210318
  13. CARBOPLATIN [Suspect]
     Active Substance: CARBOPLATIN
     Dosage: 600 MG, EVERY 3 WEEKS
     Route: 041
     Dates: start: 20210409, end: 20210409
  14. CARBOPLATIN [Suspect]
     Active Substance: CARBOPLATIN
     Dosage: 486.2 MG, EVERY 3 WEEKS
     Route: 041
     Dates: start: 20210430, end: 20210430
  15. SULPIRIDE [Concomitant]
     Active Substance: SULPIRIDE
     Indication: Schizophrenia
     Dosage: 0.3 G, 1X/DAY
     Route: 048
     Dates: start: 2001
  16. DOXEPIN HYDROCHLORIDE [Concomitant]
     Active Substance: DOXEPIN HYDROCHLORIDE
     Indication: Schizophrenia
     Dosage: 25 MG, 2X/DAY
     Route: 048
     Dates: start: 2001
  17. CLOZAPINE [Concomitant]
     Active Substance: CLOZAPINE
     Indication: Schizophrenia
     Dosage: 25 MG, 2X/DAY
     Route: 048
     Dates: start: 2021
  18. DICLOFENAC SODIUM [Concomitant]
     Active Substance: DICLOFENAC SODIUM
     Indication: Prophylaxis
     Dosage: 50 MG, 1X/DAY, ENTERIC-COATED
     Route: 048
     Dates: start: 20210304, end: 20210306
  19. DICLOFENAC SODIUM [Concomitant]
     Active Substance: DICLOFENAC SODIUM
     Indication: Arthralgia
     Dosage: 50 MG, 1X/DAY, ENTERIC-COATED
     Route: 048
     Dates: start: 20210321, end: 20210323
  20. DICLOFENAC SODIUM [Concomitant]
     Active Substance: DICLOFENAC SODIUM
     Indication: Arthralgia
     Dosage: 50 MG, 1X/DAY, ENTERIC-COATED
     Route: 048
     Dates: start: 20210411, end: 20210412
  21. DICLOFENAC SODIUM [Concomitant]
     Active Substance: DICLOFENAC SODIUM
     Indication: Bone pain
     Dosage: 50 MG, SINGLE DOSE, ENTERIC-COATED
     Route: 048
     Dates: start: 20210805, end: 20210805
  22. CEFIXIME [Concomitant]
     Active Substance: CEFIXIME
     Indication: Prophylaxis
     Dosage: 100 MG, 3X/DAY
     Route: 048
     Dates: start: 20210306, end: 20210310
  23. LIDOCAINE HYDROCHLORIDE [Concomitant]
     Active Substance: LIDOCAINE HYDROCHLORIDE
     Indication: Central venous catheterisation
     Dosage: 100 MG, SINGLE DOSE
     Route: 058
     Dates: start: 20210225, end: 20210225
  24. LIDOCAINE HYDROCHLORIDE [Concomitant]
     Active Substance: LIDOCAINE HYDROCHLORIDE
     Indication: Circumcision
     Dosage: 100 MG, SINGLE DOSE
     Route: 058
     Dates: start: 20210305, end: 20210305
  25. LIDOCAINE HYDROCHLORIDE [Concomitant]
     Active Substance: LIDOCAINE HYDROCHLORIDE
     Indication: Anaesthesia
     Dosage: 100 MG, SINGLE DOSE
     Route: 042
     Dates: start: 20210628, end: 20210628
  26. POVIDONE-IODINE [Concomitant]
     Active Substance: POVIDONE-IODINE
     Indication: Central venous catheterisation
     Dosage: 50 ML, SINGLE DOSE, DERMATOLOGIC, SOLUTION
     Route: 061
     Dates: start: 20210225, end: 20210225
  27. POVIDONE-IODINE [Concomitant]
     Active Substance: POVIDONE-IODINE
     Indication: Circumcision
     Dosage: 10 ML, 2X/DAY, DERMATOLOGIC, SOLUTION
     Route: 061
     Dates: start: 20210305, end: 20210305
  28. RECOMBINANT HUMAN BASIC FIBROBLAST GROWTH FACTOR FOR EXTERNAL USE [Concomitant]
     Indication: Circumcision
     Dosage: 70000 IU, ALTERNATE DAY, DERMATOLOGIC
     Route: 061
     Dates: start: 20210305, end: 20210307
  29. POSTERIOR PITUITARY [Concomitant]
     Indication: Haemoptysis
     Dosage: 1 ML, SINGLE DOSE
     Route: 042
     Dates: start: 20210616, end: 20210616
  30. TRANEXAMIC ACID [Concomitant]
     Active Substance: TRANEXAMIC ACID
     Indication: Haemoptysis
     Dosage: 500 MG, 1X/DAY
     Route: 042
     Dates: start: 20210616, end: 20210701

REACTIONS (1)
  - Type 2 diabetes mellitus [Recovering/Resolving]

NARRATIVE: CASE EVENT DATE: 20210702
